FAERS Safety Report 15676951 (Version 1)
Quarter: 2018Q4

REPORT INFORMATION
  Report Type: Spontaneous
  Country: US (occurrence: US)
  Receive Date: 20181130
  Receipt Date: 20181130
  Transmission Date: 20190205
  Serious: No
  Sender: FDA-Public Use
  Company Number: US-PFIZER INC-2018483676

PATIENT
  Age: 55 Year
  Sex: Female
  Weight: 68 kg

DRUGS (1)
  1. GABAPENTIN. [Suspect]
     Active Substance: GABAPENTIN
     Indication: RHEUMATOID ARTHRITIS
     Dosage: UNK, 2X/DAY (1 1/2 600 MG TABLET BY MOUTH TWICE A DAY)
     Route: 048

REACTIONS (2)
  - Memory impairment [Unknown]
  - Product use in unapproved indication [Unknown]
